FAERS Safety Report 18767778 (Version 1)
Quarter: 2021Q1

REPORT INFORMATION
  Report Type: Spontaneous
  Country: US (occurrence: US)
  Receive Date: 20210120
  Receipt Date: 20210120
  Transmission Date: 20210419
  Serious: No
  Sender: FDA-Public Use
  Company Number: None

PATIENT
  Age: 67 Year
  Sex: Male

DRUGS (1)
  1. PERFLUTREN (PERFLUTREN PROTEIN?A 0.22MG/ML MICROSPHERE INJ, SUSP, 3ML) [Suspect]
     Active Substance: PERFLUTREN
     Indication: CARDIAC OPERATION
     Dosage: ?          OTHER STRENGTH:0.22MG/ML, 3ML;?
     Dates: start: 20201228, end: 20201228

REACTIONS (4)
  - Hypotension [None]
  - Anaphylactic reaction [None]
  - Angioedema [None]
  - Rash [None]

NARRATIVE: CASE EVENT DATE: 20201228
